FAERS Safety Report 4930790-0 (Version None)
Quarter: 2006Q1

REPORT INFORMATION
  Report Type: 
  Country: None (occurrence: None)
  Receive Date: 20060227
  Receipt Date: 20060220
  Transmission Date: 20060701
  Serious: Yes (Hospitalization)
  Sender: FDA-Public Use
  Company Number: 2006RR-01643

PATIENT
  Age: 80 Year
  Sex: Female

DRUGS (6)
  1. CIPROFLOXACIN [Suspect]
     Indication: URINARY TRACT INFECTION
     Dosage: ORAL
     Route: 048
  2. ENALAPRIL MALEATE [Concomitant]
  3. HYDROCHLOROTHIAZIDE [Concomitant]
  4. CARTEOLOL HCL [Concomitant]
  5. PREDNISOLONE [Concomitant]
  6. RANITIDINE [Concomitant]

REACTIONS (1)
  - ACUTE GENERALISED EXANTHEMATOUS PUSTULOSIS [None]
